FAERS Safety Report 26160538 (Version 1)
Quarter: 2025Q4

REPORT INFORMATION
  Report Type: Spontaneous
  Country: US (occurrence: US)
  Receive Date: 20251216
  Receipt Date: 20251216
  Transmission Date: 20260118
  Serious: No
  Sender: ALVOGEN
  Company Number: None

PATIENT
  Sex: Male

DRUGS (1)
  1. FENTANYL [Suspect]
     Active Substance: FENTANYL
     Indication: Pain
     Dosage: 100 MCG/HR ?EXPIRATION DATE: 30-SEP-2027

REACTIONS (4)
  - Drug screen negative [Unknown]
  - Drug ineffective [Unknown]
  - Product packaging difficult to open [Unknown]
  - Device defective [Unknown]
